FAERS Safety Report 9154129 (Version 1)
Quarter: 2013Q1

REPORT INFORMATION
  Report Type: Spontaneous
  Country: US (occurrence: None)
  Receive Date: 20130211
  Receipt Date: 20130211
  Transmission Date: 20140127
  Serious: Yes (Life-Threatening, Hospitalization, Other)
  Sender: FDA-Public Use
  Company Number: 1589067

PATIENT
  Age: 57 Year
  Sex: Male

DRUGS (2)
  1. LIDOCAINE HCL [Suspect]
     Dosage: INJECTION USP
     Dates: start: 20110908, end: 20110908
  2. SODIUM CHLORIDE [Concomitant]
     Dates: start: 20110908

REACTIONS (16)
  - Pain [None]
  - Dehydration [None]
  - Wrong drug administered [None]
  - Cardiac arrest [None]
  - Toxicity to various agents [None]
  - Acute respiratory failure [None]
  - Subcutaneous emphysema [None]
  - Renal failure acute [None]
  - Myoglobinuria [None]
  - Rhabdomyolysis [None]
  - Renal tubular necrosis [None]
  - Ischaemic hepatitis [None]
  - Product quality issue [None]
  - Pneumothorax [None]
  - Hypotension [None]
  - Product label confusion [None]
